FAERS Safety Report 4314590-0 (Version None)
Quarter: 2004Q1

REPORT INFORMATION
  Report Type: 
  Country: None (occurrence: None)
  Receive Date: 20040308
  Receipt Date: 20040225
  Transmission Date: 20041129
  Serious: Yes (Other)
  Sender: FDA-Public Use
  Company Number: 2004198218DE

PATIENT
  Age: 69 Year
  Sex: Male
  Weight: 70 kg

DRUGS (2)
  1. BEXTRA [Suspect]
     Indication: SPINAL DISORDER
     Dosage: 1 DF, QD, ORAL
     Route: 048
     Dates: start: 20040108, end: 20040111
  2. MARCUMAR [Concomitant]

REACTIONS (4)
  - DRUG INTERACTION [None]
  - INTERNATIONAL NORMALISED RATIO DECREASED [None]
  - PROTHROMBIN TIME SHORTENED [None]
  - THROMBOSIS [None]
